FAERS Safety Report 8494305 (Version 4)
Quarter: 2013Q2

REPORT INFORMATION
  Report Type: Spontaneous
  Country: CA (occurrence: CA)
  Receive Date: 20120404
  Receipt Date: 20130521
  Transmission Date: 20140414
  Serious: Yes (Other)
  Sender: FDA-Public Use
  Company Number: CHPA2012CA005649

PATIENT
  Age: 50 Year
  Sex: Male

DRUGS (3)
  1. OTRIVIN [Suspect]
     Indication: HYPERSENSITIVITY
     Dosage: UNK, 10 TIMES A DAY
     Route: 045
  2. OTRIVIN [Suspect]
     Dosage: UNK, UNK
  3. OTRIVIN COLD + ALLERGY MEASURED DOSE PUMP [Suspect]
     Dosage: UNK, UNK
     Route: 045

REACTIONS (7)
  - Drug dependence [Not Recovered/Not Resolved]
  - Infection [Not Recovered/Not Resolved]
  - Nasal congestion [Not Recovered/Not Resolved]
  - Condition aggravated [Not Recovered/Not Resolved]
  - Dysgeusia [Not Recovered/Not Resolved]
  - Drug ineffective [Unknown]
  - Overdose [Unknown]
